FAERS Safety Report 14032840 (Version 1)
Quarter: 2017Q4

REPORT INFORMATION
  Report Type: Spontaneous
  Country: US (occurrence: US)
  Receive Date: 20171003
  Receipt Date: 20171003
  Transmission Date: 20180321
  Serious: No
  Sender: FDA-Public Use
  Company Number: US-VIFOR (INTERNATIONAL) INC.-VIT-2017-09633

PATIENT
  Age: 61 Year
  Sex: Male
  Weight: 101 kg

DRUGS (2)
  1. MIRCERA [Suspect]
     Active Substance: METHOXY POLYETHYLENE GLYCOL-EPOETIN BETA
     Route: 040
  2. MIRCERA [Suspect]
     Active Substance: METHOXY POLYETHYLENE GLYCOL-EPOETIN BETA
     Indication: PRODUCT USED FOR UNKNOWN INDICATION
     Route: 058
     Dates: start: 20170619

REACTIONS (5)
  - Tachycardia [Unknown]
  - Influenza like illness [Unknown]
  - Pyrexia [Unknown]
  - Myalgia [Unknown]
  - Hypotension [Unknown]

NARRATIVE: CASE EVENT DATE: 20170619
